FAERS Safety Report 22080038 (Version 1)
Quarter: 2023Q1

REPORT INFORMATION
  Report Type: Spontaneous
  Country: US (occurrence: None)
  Receive Date: 20230309
  Receipt Date: 20230309
  Transmission Date: 20230417
  Serious: No
  Sender: FDA-Public Use
  Company Number: None

PATIENT
  Age: 74 Year
  Sex: Male
  Weight: 89.49 kg

DRUGS (15)
  1. ABIRATERONE [Suspect]
     Active Substance: ABIRATERONE
     Indication: Prostate cancer
     Dosage: FREQUENCY : DAILY;?
     Route: 048
     Dates: start: 202202, end: 20230306
  2. ALEVE [Concomitant]
  3. BRIMONIDINE TARTRATE-TIMOLOL [Concomitant]
  4. COMBIGAN [Concomitant]
  5. DUSTATERIDE [Concomitant]
  6. ELIQUIS [Concomitant]
  7. LUMIGAN [Concomitant]
  8. LUPRON [Concomitant]
  9. MIRTAZAPINE [Concomitant]
  10. PREDNISONE [Concomitant]
  11. PROCHLORPERAZINE [Concomitant]
  12. TAMSULOSIN [Concomitant]
  13. TYLENOL [Concomitant]
  14. VITAMIN D [Concomitant]
  15. XGEVA [Concomitant]

REACTIONS (2)
  - Prostatic specific antigen increased [None]
  - Disease progression [None]
